FAERS Safety Report 10334979 (Version 1)
Quarter: 2014Q3

REPORT INFORMATION
  Report Type: Spontaneous
  Country: GB (occurrence: GB)
  Receive Date: 20140723
  Receipt Date: 20140723
  Transmission Date: 20150326
  Serious: Yes (Other)
  Sender: FDA-Public Use
  Company Number: PHHY2014GB087573

PATIENT

DRUGS (2)
  1. TRAMADOL [Interacting]
     Active Substance: TRAMADOL
     Indication: ARTHRALGIA
     Dosage: 100 MG
  2. CITALOPRAM [Suspect]
     Active Substance: CITALOPRAM HYDROBROMIDE
     Dosage: 40 MG

REACTIONS (10)
  - Medication error [Unknown]
  - Fall [Unknown]
  - Disorientation [Unknown]
  - Skin discolouration [Unknown]
  - Confusional state [Unknown]
  - Unresponsive to stimuli [Unknown]
  - Muscle rigidity [Unknown]
  - Bruxism [Unknown]
  - Speech disorder [Unknown]
  - Drug interaction [Unknown]
